FAERS Safety Report 26146379 (Version 2)
Quarter: 2025Q4

REPORT INFORMATION
  Report Type: Spontaneous
  Country: US (occurrence: US)
  Receive Date: 20251211
  Receipt Date: 20251219
  Transmission Date: 20260118
  Serious: No
  Sender: ABBVIE
  Company Number: US-ABBVIE-6579459

PATIENT
  Age: 69 Year
  Sex: Female

DRUGS (2)
  1. ARMOUR THYROID [Suspect]
     Active Substance: THYROID, PORCINE
     Indication: Hypothyroidism
     Dosage: START DATE: A FEW YEARS AGO?FORM STRENGTH: 90 MG
     Route: 048
     Dates: end: 202512
  2. SYNTHROID [Suspect]
     Active Substance: LEVOTHYROXINE SODIUM
     Indication: Product used for unknown indication
     Route: 065

REACTIONS (13)
  - Rash [Recovering/Resolving]
  - Pruritus [Recovering/Resolving]
  - Headache [Recovering/Resolving]
  - Periorbital swelling [Recovering/Resolving]
  - Product formulation issue [Not Recovered/Not Resolved]
  - Dry skin [Recovering/Resolving]
  - Swelling face [Recovering/Resolving]
  - Drug intolerance [Recovering/Resolving]
  - Cough [Recovering/Resolving]
  - Skin tightness [Recovering/Resolving]
  - Drug ineffective [Recovering/Resolving]
  - Drug ineffective [Recovering/Resolving]
  - Respiratory disorder [Recovering/Resolving]

NARRATIVE: CASE EVENT DATE: 20251101
